FAERS Safety Report 4615094-8 (Version None)
Quarter: 2005Q1

REPORT INFORMATION
  Report Type: 
  Country: None (occurrence: None)
  Receive Date: 20050322
  Receipt Date: 20050315
  Transmission Date: 20050727
  Serious: Yes (Other)
  Sender: FDA-Public Use
  Company Number: PHFR2005GB01232

PATIENT
  Age: 30 Year
  Sex: Female

DRUGS (1)
  1. SYNTOCINON [Suspect]
     Indication: ABNORMAL LABOUR
     Route: 042
     Dates: start: 20030301, end: 20030301

REACTIONS (2)
  - HAEMORRHAGE [None]
  - POSTPARTUM DEPRESSION [None]
